FAERS Safety Report 5807684-1 (Version None)
Quarter: 2008Q3

REPORT INFORMATION
  Report Type: 
  Country: None (occurrence: None)
  Receive Date: 20080711
  Receipt Date: 20080703
  Transmission Date: 20090109
  Serious: Yes (Life-Threatening)
  Sender: FDA-Public Use
  Company Number: GB-ABBOTT-08P-167-0461191-00

PATIENT
  Age: 38 Year
  Sex: Male

DRUGS (1)
  1. ERYTHROMYCIN BASE [Suspect]
     Indication: INFECTION
     Route: 048
     Dates: start: 20080107, end: 20080110

REACTIONS (1)
  - GRAND MAL CONVULSION [None]
